FAERS Safety Report 13676564 (Version 1)
Quarter: 2017Q2

REPORT INFORMATION
  Report Type: Report from Study
  Country: JP (occurrence: JP)
  Receive Date: 20170622
  Receipt Date: 20170622
  Transmission Date: 20170830
  Serious: Yes (Death, Life-Threatening, Hospitalization, Other)
  Sender: FDA-Public Use
  Company Number: JP-BRISTOL-MYERS SQUIBB COMPANY-BMS-2016-028026

PATIENT
  Age: 65 Year
  Sex: Female

DRUGS (1)
  1. NIVOLUMAB [Suspect]
     Active Substance: NIVOLUMAB
     Indication: NON-SMALL CELL LUNG CANCER RECURRENT
     Dosage: 3 MG/KG, 200 MG
     Route: 041
     Dates: start: 20160325, end: 20160325

REACTIONS (6)
  - Gamma-glutamyltransferase increased [Unknown]
  - Malignant pleural effusion [Fatal]
  - Hypothyroidism [Unknown]
  - Hypoxia [Unknown]
  - Malignant neoplasm progression [Fatal]
  - Renal disorder [Unknown]

NARRATIVE: CASE EVENT DATE: 20160325
